FAERS Safety Report 7685620-3 (Version None)
Quarter: 2011Q3

REPORT INFORMATION
  Report Type: 
  Country: None (occurrence: None)
  Receive Date: 20110816
  Receipt Date: 20110810
  Transmission Date: 20111222
  Serious: Yes (Other)
  Sender: FDA-Public Use
  Company Number: GXKR2011DE02443

PATIENT

DRUGS (3)
  1. FLUOROURACIL [Suspect]
     Route: 065
  2. OXALIPLATIN [Suspect]
     Route: 065
  3. EPIRUBICIN [Suspect]
     Route: 065

REACTIONS (2)
  - INTERSTITIAL LUNG DISEASE [None]
  - LYMPHANGIOSIS CARCINOMATOSA [None]
